FAERS Safety Report 18895277 (Version 1)
Quarter: 2021Q1

REPORT INFORMATION
  Report Type: Spontaneous
  Country: US (occurrence: US)
  Receive Date: 20210216
  Receipt Date: 20210216
  Transmission Date: 20210420
  Serious: No
  Sender: FDA-Public Use
  Company Number: US-MTPC-MTDA2021-0003987

PATIENT
  Sex: Female

DRUGS (1)
  1. RADICAVA [Suspect]
     Active Substance: EDARAVONE
     Indication: AMYOTROPHIC LATERAL SCLEROSIS
     Dosage: 60 MILLIGRAM, QD FOR 10 DAYS OUT OF 14 DAYS,THEN 14 DAYS OFF
     Route: 042
     Dates: start: 20200224, end: 20210129

REACTIONS (2)
  - Condition aggravated [Unknown]
  - Drug ineffective [Unknown]
